FAERS Safety Report 6223680-7 (Version None)
Quarter: 2009Q2

REPORT INFORMATION
  Report Type: 
  Country: None (occurrence: None)
  Receive Date: 20090611
  Receipt Date: 20090306
  Transmission Date: 20091009
  Serious: No
  Sender: FDA-Public Use
  Company Number: US-ABBOTT-08P-163-0479510-00

PATIENT
  Sex: Female
  Weight: 58.112 kg

DRUGS (18)
  1. HUMIRA [Suspect]
     Indication: RHEUMATOID ARTHRITIS
     Route: 058
     Dates: start: 20080701
  2. HUMIRA [Suspect]
     Indication: CROHN'S DISEASE
  3. HUMIRA [Suspect]
  4. METHOTREXATE [Concomitant]
     Indication: CROHN'S DISEASE
     Route: 030
  5. DONATOL [Concomitant]
     Indication: CROHN'S DISEASE
     Dosage: 10MG - 2 TABLETS THREE TIMES DAILY
     Route: 048
  6. REGLAN [Concomitant]
     Indication: CROHN'S DISEASE
     Dosage: 10MG - 2 TABLETS THREE TIMES DAILY
     Route: 048
  7. ATIVAN [Concomitant]
     Indication: ANXIETY
     Route: 048
  8. NEXIUM [Concomitant]
     Indication: CROHN'S DISEASE
     Route: 048
  9. TOPROMAX [Concomitant]
     Indication: TENSION HEADACHE
     Route: 048
  10. SLO-FE [Concomitant]
     Indication: MINERAL SUPPLEMENTATION
     Route: 048
  11. ZOCAR [Concomitant]
     Indication: BLOOD CHOLESTEROL INCREASED
     Dosage: 20MG DAILY AT BEDTIME
     Route: 048
  12. ATENOLOL [Concomitant]
     Indication: HEART RATE
     Route: 048
  13. MOBIC [Concomitant]
     Indication: ARTHRITIS
     Route: 048
  14. PREDNISONE [Concomitant]
     Indication: CROHN'S DISEASE
     Route: 048
  15. VITAMIN B-12 [Concomitant]
     Indication: DRUG USE FOR UNKNOWN INDICATION
     Route: 030
  16. ELAVIL [Concomitant]
     Indication: INSOMNIA
     Dosage: 50MG DAILY AT BEDTIME
     Route: 048
  17. FOLIC ACID [Concomitant]
     Indication: DRUG USE FOR UNKNOWN INDICATION
     Route: 048
  18. FLEXERIL [Concomitant]
     Indication: MUSCLE SPASMS
     Route: 048

REACTIONS (1)
  - NASOPHARYNGITIS [None]
